FAERS Safety Report 5134464-5 (Version None)
Quarter: 2006Q4

REPORT INFORMATION
  Report Type: 
  Country: None (occurrence: None)
  Receive Date: 20061025
  Receipt Date: 20061018
  Transmission Date: 20070319
  Serious: Yes (Hospitalization)
  Sender: FDA-Public Use
  Company Number: AU-PURDUE-USA_2006_0025419

PATIENT
  Age: 16 Year
  Sex: Female

DRUGS (6)
  1. OXYCONTIN [Suspect]
     Indication: PAIN
     Dosage: 20 MG, DAILY
     Route: 048
     Dates: start: 20060813, end: 20060814
  2. ENDONE [Suspect]
     Indication: PAIN
     Dosage: UNK, PM
     Route: 048
     Dates: start: 20060813, end: 20060814
  3. MORPHINE [Suspect]
     Indication: PAIN
     Dosage: 5 MG, UNK
     Route: 042
     Dates: start: 20060813, end: 20060814
  4. CLEXANE [Concomitant]
  5. ACETAMINOPHEN [Concomitant]
  6. COLOXYL [Concomitant]

REACTIONS (3)
  - PERIORBITAL OEDEMA [None]
  - PHARYNGEAL OEDEMA [None]
  - RASH [None]
